FAERS Safety Report 8426020-8 (Version None)
Quarter: 2012Q2

REPORT INFORMATION
  Report Type: 
  Country: None (occurrence: None)
  Receive Date: 20120601
  Receipt Date: 20120523
  Transmission Date: 20120825
  Serious: Yes (Hospitalization)
  Sender: FDA-Public Use
  Company Number: 2012SP028236

PATIENT
  Age: 40 Year
  Sex: Female
  Weight: 56 kg

DRUGS (5)
  1. DUPHASTON [Concomitant]
  2. GANIRELIX ACETATE INJECTION [Suspect]
     Indication: PREVENTION OF PREMATURE OVULATION
     Dosage: 0.25 MG; QD; SC
     Route: 058
     Dates: start: 20111206, end: 20111206
  3. HCG MOCHIDA [Concomitant]
  4. SEROPHENE [Concomitant]
  5. HMG FUJI SEIYAKU [Concomitant]

REACTIONS (3)
  - ABORTION MISSED [None]
  - TWIN PREGNANCY [None]
  - MATERNAL EXPOSURE BEFORE PREGNANCY [None]
